FAERS Safety Report 10528378 (Version 1)
Quarter: 2014Q4

REPORT INFORMATION
  Report Type: Spontaneous
  Country: US (occurrence: None)
  Receive Date: 20141017
  Receipt Date: 20141017
  Transmission Date: 20150528
  Serious: Yes (Disabling)
  Sender: FDA-Public Use
  Company Number: None

PATIENT
  Age: 34 Year
  Sex: Female

DRUGS (1)
  1. NUVARING [Suspect]
     Active Substance: ETHINYL ESTRADIOL\ETONOGESTREL
     Indication: CONTRACEPTION
     Dosage: 1 RING, 3WKS IN AND1 WK OUT.
     Route: 067

REACTIONS (6)
  - Chills [None]
  - Abdominal pain upper [None]
  - Alopecia [None]
  - Faeces pale [None]
  - Abdominal distension [None]
  - Pyrexia [None]

NARRATIVE: CASE EVENT DATE: 20140716
